FAERS Safety Report 24735722 (Version 2)
Quarter: 2025Q1

REPORT INFORMATION
  Report Type: Spontaneous
  Country: US (occurrence: US)
  Receive Date: 20241216
  Receipt Date: 20250128
  Transmission Date: 20250408
  Serious: No
  Sender: ALEXION PHARMACEUTICALS
  Company Number: US-AstraZeneca-CH-00767834AP

PATIENT

DRUGS (2)
  1. SYMBICORT [Suspect]
     Active Substance: BUDESONIDE\FORMOTEROL FUMARATE DIHYDRATE
     Indication: Chronic obstructive pulmonary disease
     Route: 065
  2. BUDESONIDE\FORMOTEROL [Suspect]
     Active Substance: BUDESONIDE\FORMOTEROL
     Route: 065

REACTIONS (7)
  - Product dose omission issue [Unknown]
  - Device issue [Unknown]
  - Dyspnoea [Unknown]
  - Wheezing [Unknown]
  - Wrong technique in device usage process [Unknown]
  - Candida infection [Unknown]
  - Drug ineffective [Unknown]
